FAERS Safety Report 6032006-3 (Version None)
Quarter: 2009Q1

REPORT INFORMATION
  Report Type: 
  Country: None (occurrence: None)
  Receive Date: 20090108
  Receipt Date: 20081230
  Transmission Date: 20090719
  Serious: Yes (Hospitalization)
  Sender: FDA-Public Use
  Company Number: AR-ABBOTT-08P-007-0494624-00

PATIENT
  Sex: Female
  Weight: 85 kg

DRUGS (5)
  1. ZEMPLAR [Suspect]
     Indication: RENAL FAILURE CHRONIC
     Route: 042
     Dates: start: 20081115
  2. ATENOLOL [Concomitant]
     Indication: HYPERTENSION
     Route: 048
     Dates: start: 20040101
  3. ASPIRIN [Concomitant]
     Indication: CARDIAC DISORDER
     Route: 048
     Dates: start: 19980101
  4. SIMVASTATIN+EZETIMIBE [Concomitant]
     Indication: DYSLIPIDAEMIA
     Dosage: 40MG/10MG DAILY
     Route: 048
     Dates: start: 20050101
  5. TRIMETAZIDINE [Concomitant]
     Indication: CARDIAC DISORDER
     Route: 048
     Dates: start: 20060101

REACTIONS (2)
  - CHEST PAIN [None]
  - DYSPNOEA [None]
